FAERS Safety Report 9319407 (Version 1)
Quarter: 2013Q2

REPORT INFORMATION
  Report Type: Spontaneous
  Country: US (occurrence: None)
  Receive Date: 20130529
  Receipt Date: 20130529
  Transmission Date: 20140414
  Serious: Yes (Hospitalization, Disabling)
  Sender: FDA-Public Use
  Company Number: None

PATIENT
  Age: 66 Year
  Sex: Female
  Weight: 104.33 kg

DRUGS (1)
  1. AMLODIPINE [Suspect]
     Route: 048

REACTIONS (2)
  - Bradycardia [None]
  - Heart rate decreased [None]
